FAERS Safety Report 9219428 (Version 1)
Quarter: 2013Q2

REPORT INFORMATION
  Report Type: Spontaneous
  Country: US (occurrence: US)
  Receive Date: 20130409
  Receipt Date: 20130409
  Transmission Date: 20140414
  Serious: No
  Sender: FDA-Public Use
  Company Number: US-PFIZER INC-2013107630

PATIENT
  Age: 88 Year
  Sex: Male
  Weight: 77.1 kg

DRUGS (3)
  1. CELEBREX [Suspect]
     Indication: ARTHRITIS
     Dosage: 200 MG, 1X/DAY
     Route: 048
     Dates: start: 20130223, end: 20130223
  2. TAMSULOSIN [Concomitant]
     Dosage: 0.4 MG, UNK
  3. RANITIDINE [Concomitant]
     Dosage: 150 MG, UNK

REACTIONS (1)
  - Tremor [Unknown]
